FAERS Safety Report 20133470 (Version 1)
Quarter: 2021Q4

REPORT INFORMATION
  Report Type: Spontaneous
  Country: US (occurrence: US)
  Receive Date: 20211201
  Receipt Date: 20211201
  Transmission Date: 20220303
  Serious: No
  Sender: FDA-Public Use
  Company Number: US-CHIESI-2021CHF02232

PATIENT
  Age: 80 Year
  Sex: Female
  Weight: 74.8 kg

DRUGS (16)
  1. BETHKIS [Suspect]
     Active Substance: TOBRAMYCIN
     Indication: Pseudomonas infection
     Dosage: 300 MILLIGRAM, BID
     Route: 055
     Dates: start: 20210404, end: 20210517
  2. BETHKIS [Suspect]
     Active Substance: TOBRAMYCIN
     Indication: Burkholderia mallei infection
  3. BETAMETHASONE DIPROPIONATE [Concomitant]
     Active Substance: BETAMETHASONE DIPROPIONATE
     Indication: Product used for unknown indication
     Dosage: UNK, TID
     Route: 061
  4. CIPROFLOXACIN HYDROCHLORIDE [Concomitant]
     Active Substance: CIPROFLOXACIN HYDROCHLORIDE
     Indication: Product used for unknown indication
     Dosage: 1 DOSAGE FORM, Q12H
     Route: 048
  5. VITAMIN C [Concomitant]
     Active Substance: ASCORBIC ACID
     Indication: Product used for unknown indication
     Dosage: 1000 MILLIGRAM, QD
     Route: 048
  6. VITAMIN D3 [Concomitant]
     Active Substance: CHOLECALCIFEROL
     Indication: Product used for unknown indication
     Dosage: 400 INTERNATIONAL UNIT
     Route: 048
  7. ZINC SULFATE [ZINC SULFATE MONOHYDRATE] [Concomitant]
     Indication: Product used for unknown indication
     Dosage: 220 MILLIGRAM, QD
     Route: 048
  8. ACETYLCYSTEINE [Concomitant]
     Active Substance: ACETYLCYSTEINE
     Indication: Product used for unknown indication
     Dosage: UNK
     Route: 048
  9. ACETAMINOPHEN [Concomitant]
     Active Substance: ACETAMINOPHEN
     Indication: Product used for unknown indication
     Dosage: 650 MILLIGRAM
     Route: 048
  10. GUAIFENESIN [Concomitant]
     Active Substance: GUAIFENESIN
     Indication: Cough
     Dosage: 5 MILLILITER
  11. ANORO ELLIPTA [Concomitant]
     Active Substance: UMECLIDINIUM BROMIDE\VILANTEROL TRIFENATATE
     Indication: Product used for unknown indication
     Dosage: 1 DOSAGE FORM, QD
     Route: 055
  12. VENTOLIN HFA [Concomitant]
     Active Substance: ALBUTEROL SULFATE
     Indication: Dyspnoea
     Dosage: 2 DOSAGE FORM
     Route: 055
  13. LEVOTHYROXINE [Concomitant]
     Active Substance: LEVOTHYROXINE
     Indication: Product used for unknown indication
     Dosage: 1 DOSAGE FORM, QD
     Route: 048
  14. ASPIRIN [Concomitant]
     Active Substance: ASPIRIN
     Indication: Product used for unknown indication
     Dosage: 81 MILLIGRAM, QD
     Route: 048
  15. IPRATROPIUM [Concomitant]
     Active Substance: IPRATROPIUM
     Indication: Product used for unknown indication
     Dosage: UNK
  16. SYNTHROID [Concomitant]
     Active Substance: LEVOTHYROXINE SODIUM
     Indication: Product used for unknown indication
     Dosage: UNK

REACTIONS (7)
  - Emphysema [Recovered/Resolved]
  - Nasal congestion [Unknown]
  - Cough [Unknown]
  - Rash [Recovering/Resolving]
  - Rash [Recovering/Resolving]
  - Aphonia [Unknown]
  - Product use in unapproved indication [Recovered/Resolved]

NARRATIVE: CASE EVENT DATE: 20210404
